FAERS Safety Report 9661061 (Version 2)
Quarter: 2013Q4

REPORT INFORMATION
  Report Type: Spontaneous
  Country: DE (occurrence: DE)
  Receive Date: 20131031
  Receipt Date: 20131118
  Transmission Date: 20140711
  Serious: Yes (Hospitalization)
  Sender: FDA-Public Use
  Company Number: DE-VIIV HEALTHCARE LIMITED-D0081516A

PATIENT
  Age: 34 Year
  Sex: Female
  Weight: 40 kg

DRUGS (2)
  1. KIVEXA [Suspect]
     Dosage: 900MG PER DAY
     Route: 048
     Dates: start: 201310
  2. VIRAMUNE [Suspect]
     Dosage: 400MG PER DAY
     Route: 048

REACTIONS (4)
  - Headache [Not Recovered/Not Resolved]
  - Dizziness [Not Recovered/Not Resolved]
  - Nausea [Not Recovered/Not Resolved]
  - Vomiting [Not Recovered/Not Resolved]
